FAERS Safety Report 19243880 (Version 1)
Quarter: 2021Q2

REPORT INFORMATION
  Report Type: Other
  Country: IT (occurrence: IT)
  Receive Date: 20210511
  Receipt Date: 20210511
  Transmission Date: 20210717
  Serious: Yes (Hospitalization)
  Sender: FDA-Public Use
  Company Number: IT-COLLEGIUM PHARMACEUTICAL, INC.-2021CGM00524

PATIENT
  Age: 81 Year
  Sex: Male

DRUGS (12)
  1. TAPENTADOL [Suspect]
     Active Substance: TAPENTADOL
     Indication: PRODUCT USED FOR UNKNOWN INDICATION
     Dosage: 2 DF, 1X/DAY
     Dates: start: 20210302, end: 20210303
  2. LYRICA [Suspect]
     Active Substance: PREGABALIN
     Indication: PRODUCT USED FOR UNKNOWN INDICATION
     Dosage: 1 DF, 1X/DAY
     Route: 048
     Dates: start: 20210219, end: 20210304
  3. DELTACORTENE [Concomitant]
     Active Substance: PREDNISONE
  4. TORVAS [Concomitant]
  5. PANTOPRAZOLE SODIUM SESQUIHYDRATE [Concomitant]
     Active Substance: PANTOPRAZOLE SODIUM
  6. ZOLPIDEM RATIOPHARM [Suspect]
     Active Substance: ZOLPIDEM TARTRATE
     Indication: INSOMNIA
     Dosage: 1 DF, 1X/DAY
     Route: 048
  7. PARACETAMOL [Concomitant]
     Active Substance: ACETAMINOPHEN
  8. LEVOFLOXACIN HEMIHYDRATE [Concomitant]
     Active Substance: LEVOFLOXACIN
  9. TAREG [Concomitant]
     Active Substance: VALSARTAN
  10. FLUCONAZOLE. [Concomitant]
     Active Substance: FLUCONAZOLE
  11. ZYLORIC [Concomitant]
     Active Substance: ALLOPURINOL
  12. PIPERACILINA/TAZOBACTAM [Concomitant]
     Active Substance: PIPERACILLIN SODIUM\TAZOBACTAM SODIUM

REACTIONS (2)
  - Petit mal epilepsy [Recovering/Resolving]
  - Drug interaction [Recovered/Resolved]

NARRATIVE: CASE EVENT DATE: 20210302
